FAERS Safety Report 13376093 (Version 1)
Quarter: 2017Q1

REPORT INFORMATION
  Report Type: Spontaneous
  Country: US (occurrence: US)
  Receive Date: 20170328
  Receipt Date: 20170328
  Transmission Date: 20170429
  Serious: No
  Sender: FDA-Public Use
  Company Number: US-ASTELLAS-2016US038802

PATIENT
  Age: 72 Year
  Sex: Male

DRUGS (4)
  1. FURACIN                            /00065702/ [Concomitant]
     Indication: PRODUCT USED FOR UNKNOWN INDICATION
     Dosage: UNK UNK, UNKNOWN FREQ.
     Route: 065
     Dates: start: 201607
  2. LANOXIN [Concomitant]
     Active Substance: DIGOXIN
     Indication: PRODUCT USED FOR UNKNOWN INDICATION
     Dosage: UNK UNK, UNKNOWN FREQ.
     Route: 065
     Dates: start: 1986
  3. DILTIAZEM. [Concomitant]
     Active Substance: DILTIAZEM
     Indication: PRODUCT USED FOR UNKNOWN INDICATION
     Dosage: UNK UNK, UNKNOWN FREQ.
     Route: 065
     Dates: start: 1986
  4. TACROLIMUS OINTMENT [Suspect]
     Active Substance: TACROLIMUS
     Indication: ECZEMA
     Dosage: SMALL AMOUNT, AT BEDTIME (QHS)
     Route: 061
     Dates: start: 20160830, end: 20160914

REACTIONS (3)
  - Inappropriate schedule of drug administration [Unknown]
  - Palpitations [Recovered/Resolved]
  - Nightmare [Recovered/Resolved]

NARRATIVE: CASE EVENT DATE: 20160830
